FAERS Safety Report 5386373-4 (Version None)
Quarter: 2007Q3

REPORT INFORMATION
  Report Type: 
  Country: None (occurrence: None)
  Receive Date: 20070710
  Receipt Date: 20070710
  Transmission Date: 20080115
  Serious: Yes (Hospitalization)
  Sender: FDA-Public Use
  Company Number: None

PATIENT
  Age: 53 Year
  Sex: Male

DRUGS (1)
  1. VERAPAMIL [Suspect]
     Indication: HYPERTENSION
     Dosage: 240MG AM PO
     Route: 048
     Dates: start: 20060727, end: 20070626

REACTIONS (4)
  - CARDIAC FAILURE CONGESTIVE [None]
  - CONDITION AGGRAVATED [None]
  - EJECTION FRACTION DECREASED [None]
  - OEDEMA PERIPHERAL [None]
